FAERS Safety Report 7422210-1 (Version None)
Quarter: 2011Q2

REPORT INFORMATION
  Report Type: 
  Country: None (occurrence: None)
  Receive Date: 20110418
  Receipt Date: 20110405
  Transmission Date: 20111010
  Serious: Yes (Other)
  Sender: FDA-Public Use
  Company Number: IN-MYLANLABS-2011S1007266

PATIENT
  Age: 2 Year
  Sex: Male

DRUGS (1)
  1. PHENYTOIN [Suspect]
     Indication: HEAD INJURY
     Route: 065

REACTIONS (8)
  - GAIT DISTURBANCE [None]
  - TOXICITY TO VARIOUS AGENTS [None]
  - PYREXIA [None]
  - VOMITING [None]
  - SPEECH DISORDER [None]
  - GRAND MAL CONVULSION [None]
  - SENSORY DISTURBANCE [None]
  - LETHARGY [None]
